FAERS Safety Report 23027417 (Version 1)
Quarter: 2023Q4

REPORT INFORMATION
  Report Type: Spontaneous
  Country: US (occurrence: US)
  Receive Date: 20231004
  Receipt Date: 20231004
  Transmission Date: 20240110
  Serious: No
  Sender: FDA-Public Use
  Company Number: US-MELINTA THERAPEUTICS, LLC-US-MLNT-23-00369

PATIENT
  Age: 49 Year
  Sex: Female

DRUGS (4)
  1. KIMYRSA [Suspect]
     Active Substance: ORITAVANCIN DIPHOSPHATE
     Indication: Arthritis infective
     Dosage: 1200 MILLIGRAM, QN
     Route: 042
     Dates: start: 20230123, end: 20230123
  2. KIMYRSA [Suspect]
     Active Substance: ORITAVANCIN DIPHOSPHATE
     Dosage: 1200 MILLIGRAM, QN
     Route: 042
     Dates: start: 20230130, end: 20230130
  3. VANCOMYCIN [Concomitant]
     Active Substance: VANCOMYCIN
     Indication: Arthritis infective
     Dosage: UNK
  4. CEFEPIME [Concomitant]
     Active Substance: CEFEPIME HYDROCHLORIDE
     Indication: Arthritis infective
     Dosage: UNK

REACTIONS (6)
  - Crying [Unknown]
  - Headache [Unknown]
  - Dizziness [Unknown]
  - Infusion related reaction [Unknown]
  - Off label use [Unknown]
  - Multiple use of single-use product [Unknown]

NARRATIVE: CASE EVENT DATE: 20230130
